FAERS Safety Report 7800551 (Version 4)
Quarter: 2013Q3

REPORT INFORMATION
  Report Type: Spontaneous
  Country: US (occurrence: US)
  Receive Date: 20110204
  Receipt Date: 20130926
  Transmission Date: 20140515
  Serious: Yes (Other)
  Sender: FDA-Public Use
  Company Number: US-ASTRAZENECA-2010SE02583

PATIENT
  Age: 41 Year
  Sex: Female
  Weight: 96.6 kg

DRUGS (4)
  1. SEROQUEL XR [Suspect]
     Indication: BIPOLAR DISORDER
     Route: 048
     Dates: start: 2010, end: 201101
  2. SEROQUEL XR [Suspect]
     Indication: BIPOLAR DISORDER
     Route: 048
  3. LOPRESSOR [Concomitant]
     Indication: SUPRAVENTRICULAR TACHYCARDIA
  4. TRAZADONE [Concomitant]
     Indication: SLEEP DISORDER

REACTIONS (14)
  - Suicidal ideation [Unknown]
  - Transient ischaemic attack [Unknown]
  - Affect lability [Unknown]
  - Insomnia [Unknown]
  - Influenza like illness [Unknown]
  - Malaise [Unknown]
  - Headache [Unknown]
  - Migraine [Not Recovered/Not Resolved]
  - Nausea [Not Recovered/Not Resolved]
  - Agitation [Unknown]
  - Social avoidant behaviour [Unknown]
  - Vision blurred [Not Recovered/Not Resolved]
  - Vomiting [Unknown]
  - Drug dose omission [Unknown]
